FAERS Safety Report 15309541 (Version 1)
Quarter: 2018Q3

REPORT INFORMATION
  Report Type: Spontaneous
  Country: DE (occurrence: DE)
  Receive Date: 20180823
  Receipt Date: 20180823
  Transmission Date: 20181010
  Serious: Yes (Hospitalization, Other)
  Sender: FDA-Public Use
  Company Number: DE-TEVA-2018-DE-946612

PATIENT
  Age: 80 Year
  Sex: Female

DRUGS (15)
  1. RISPERIDON [Interacting]
     Active Substance: RISPERIDONE
     Indication: PRODUCT USED FOR UNKNOWN INDICATION
     Dosage: DOSAGE FORM: UNSPECIFIED
     Route: 048
     Dates: start: 20180213, end: 20180221
  2. AUGENTROPFEN [Concomitant]
     Dosage: DOSAGE FORM: UNSPECIFIED
     Route: 065
     Dates: end: 20180221
  3. ELIQUIS [Concomitant]
     Active Substance: APIXABAN
     Dosage: DOSAGE FORM: UNSPECIFIED
     Route: 048
     Dates: end: 20180221
  4. LANTUS [Concomitant]
     Active Substance: INSULIN GLARGINE
     Indication: DIABETES MELLITUS
     Dosage: DOSAGE FORM: UNSPECIFIED, 20 IE
     Route: 058
     Dates: end: 20180221
  5. PIPAMPERON [Interacting]
     Active Substance: PIPAMPERONE HYDROCHLORIDE
     Indication: PRODUCT USED FOR UNKNOWN INDICATION
     Dosage: DOSAGE FORM: UNSPECIFIED
     Route: 048
     Dates: start: 20180213, end: 20180221
  6. MIRTAZAPIN [Concomitant]
     Active Substance: MIRTAZAPINE
     Dosage: DOSAGE FORM: UNSPECIFIED
     Route: 048
     Dates: start: 20180213, end: 20180221
  7. BRIMOZEPT [Concomitant]
     Dosage: 2 GTT
     Route: 047
     Dates: end: 20180221
  8. ACTRAPID [Concomitant]
     Active Substance: INSULIN HUMAN
     Indication: DIABETES MELLITUS
     Dosage: IE
     Route: 058
     Dates: end: 20180221
  9. ENALAPRIL [Concomitant]
     Active Substance: ENALAPRIL
     Dosage: DOSAGE FORM: UNSPECIFIED
     Route: 048
     Dates: start: 20180221, end: 20180221
  10. DORZOCOMP?VISION [Concomitant]
     Dosage: 2 X 1 GTT
     Route: 047
     Dates: end: 20180221
  11. RISPERIDONE. [Suspect]
     Active Substance: RISPERIDONE
     Indication: PRODUCT USED FOR UNKNOWN INDICATION
     Dosage: 0 TO 2.5 MG
     Route: 048
     Dates: start: 20161201, end: 20180212
  12. RISPERIDON [Interacting]
     Active Substance: RISPERIDONE
     Route: 048
     Dates: start: 20180222
  13. ENALAPRIL [Concomitant]
     Active Substance: ENALAPRIL
     Dosage: DOSAGE FORM: UNSPECIFIED
     Route: 048
     Dates: end: 20180220
  14. SIMVASTATIN. [Concomitant]
     Active Substance: SIMVASTATIN
     Dosage: DOSAGE FORM: UNSPECIFIED
     Route: 048
     Dates: end: 20180221
  15. PREDNIFLUID [Concomitant]
     Dosage: 2 GTT
     Route: 047
     Dates: end: 20180221

REACTIONS (2)
  - Drug interaction [Recovering/Resolving]
  - Rabbit syndrome [Recovering/Resolving]

NARRATIVE: CASE EVENT DATE: 20180221
